FAERS Safety Report 7617039-5 (Version None)
Quarter: 2011Q3

REPORT INFORMATION
  Report Type: 
  Country: None (occurrence: None)
  Receive Date: 20110718
  Receipt Date: 20090930
  Transmission Date: 20111222
  Serious: Yes (Death, Other)
  Sender: FDA-Public Use
  Company Number: US-BAYER-200934531NA

PATIENT
  Age: 78 Year
  Sex: Female
  Weight: 80 kg

DRUGS (30)
  1. TRASYLOL [Suspect]
     Indication: MITRAL VALVE REPAIR
  2. LIDOCAINE [Concomitant]
     Indication: PRODUCT USED FOR UNKNOWN INDICATION
     Dosage: 100 MG, UNK
     Route: 042
     Dates: start: 20041105, end: 20041105
  3. TRASYLOL [Suspect]
     Indication: CARDIAC ABLATION
     Dosage: 200 ML
     Route: 042
     Dates: start: 20041105, end: 20041105
  4. TRASYLOL [Suspect]
     Indication: ATRIAL FIBRILLATION
     Dosage: 1 ML
     Route: 042
     Dates: start: 20041105, end: 20041105
  5. HEPARIN [Concomitant]
     Indication: PRODUCT USED FOR UNKNOWN INDICATION
     Dosage: 29000 U, UNK
     Route: 042
     Dates: start: 20041105, end: 20041105
  6. DOBUTAMINE HCL [Concomitant]
     Indication: PRODUCT USED FOR UNKNOWN INDICATION
     Dosage: UNK
     Route: 042
     Dates: start: 20041105, end: 20041105
  7. FENTANYL-100 [Concomitant]
     Indication: PRODUCT USED FOR UNKNOWN INDICATION
     Dosage: 25MCG
     Route: 042
     Dates: start: 20041105, end: 20041105
  8. ATROPINE [Concomitant]
     Indication: PRODUCT USED FOR UNKNOWN INDICATION
     Dosage: 0.4 MG, UNK
     Route: 042
     Dates: start: 20041105, end: 20041105
  9. MAGNESIUM SULFATE [Concomitant]
     Indication: PRODUCT USED FOR UNKNOWN INDICATION
     Dosage: 2 G, UNK
     Route: 042
     Dates: start: 20041105, end: 20041105
  10. CALCIUM CHLORIDE [Concomitant]
     Indication: PRODUCT USED FOR UNKNOWN INDICATION
     Dosage: 1 G, UNK
     Route: 042
     Dates: start: 20041105, end: 20041105
  11. NATRECOR [Concomitant]
     Dosage: UNK
     Dates: start: 20041105
  12. COUMADIN [Concomitant]
  13. LOPRESSOR [Concomitant]
     Indication: PRODUCT USED FOR UNKNOWN INDICATION
     Dosage: 25 MG, UNK
     Route: 048
  14. VERSED [Concomitant]
     Indication: PRODUCT USED FOR UNKNOWN INDICATION
     Dosage: 15 MG, UNK
     Route: 042
     Dates: start: 20041105, end: 20041105
  15. AMIODARONE HCL [Concomitant]
     Indication: PRODUCT USED FOR UNKNOWN INDICATION
     Dosage: UNK
     Route: 042
     Dates: start: 20041105, end: 20041105
  16. MANNITOL [Concomitant]
     Indication: PRODUCT USED FOR UNKNOWN INDICATION
     Dosage: 12.5 G, UNK
     Route: 042
     Dates: start: 20041105, end: 20041105
  17. LOTENSIN [Concomitant]
     Indication: PRODUCT USED FOR UNKNOWN INDICATION
     Dosage: 40 MG, UNK
     Route: 048
  18. LASIX [Concomitant]
  19. METOPROLOL TARTRATE [Concomitant]
  20. GLYBURIDE [Concomitant]
  21. PROPOFOL [Concomitant]
     Indication: PRODUCT USED FOR UNKNOWN INDICATION
     Dosage: UNK
     Route: 042
     Dates: start: 20041105, end: 20041105
  22. VANCOMYCIN [Concomitant]
     Dosage: 1 G, UNK
     Dates: start: 20041105
  23. DOBUTREX [Concomitant]
     Dosage: 3MCG/KG/MIN
     Dates: start: 20041105
  24. VECURONIUM BROMIDE [Concomitant]
     Indication: PRODUCT USED FOR UNKNOWN INDICATION
     Dosage: 24 MG, UNK
     Route: 042
     Dates: start: 20041105, end: 20041105
  25. PROTAMINE SULFATE [Concomitant]
     Indication: PRODUCT USED FOR UNKNOWN INDICATION
     Dosage: 300 MG, UNK
     Route: 042
     Dates: start: 20041105, end: 20041105
  26. EPHEDRINE [Concomitant]
     Indication: PRODUCT USED FOR UNKNOWN INDICATION
     Dosage: 5 MG, UNK
     Route: 042
     Dates: start: 20041105, end: 20041105
  27. RED BLOOD CELLS [Concomitant]
     Dosage: 1 U, UNK
     Route: 042
     Dates: start: 20041105
  28. TRASYLOL [Suspect]
     Indication: TRICUSPID VALVE REPAIR
  29. LANOXIN [Concomitant]
  30. FRESH FROZEN PLASMA [Concomitant]
     Dosage: 2 U, UNK
     Route: 042
     Dates: start: 20041105

REACTIONS (12)
  - RENAL INJURY [None]
  - ANXIETY [None]
  - RENAL IMPAIRMENT [None]
  - EMOTIONAL DISTRESS [None]
  - UNEVALUABLE EVENT [None]
  - MULTI-ORGAN FAILURE [None]
  - DEATH [None]
  - FEAR [None]
  - PAIN [None]
  - STRESS [None]
  - RENAL FAILURE [None]
  - INJURY [None]
